FAERS Safety Report 6315077-6 (Version None)
Quarter: 2009Q3

REPORT INFORMATION
  Report Type: 
  Country: None (occurrence: None)
  Receive Date: 20090817
  Receipt Date: 20090813
  Transmission Date: 20100115
  Serious: Yes (Hospitalization)
  Sender: FDA-Public Use
  Company Number: GXKR2009DE09144

PATIENT
  Age: 79 Year
  Sex: Female

DRUGS (12)
  1. BISOHEXAL             (BISOPROLOL) FILM-COATED TABLET [Suspect]
     Indication: HYPERTENSION
     Dosage: 2.5 MG, BID, ORAL
     Route: 048
     Dates: end: 20090721
  2. CALCIMAGON-D3          (CALCIUM CARBONATE, COLECALCIFEROL) [Suspect]
     Indication: HYPOCALCAEMIA
     Dosage: 2.5 MG, BID, ORAL
     Route: 048
     Dates: start: 20090401, end: 20090721
  3. DIGITOXIN TAB [Suspect]
     Indication: ATRIAL FIBRILLATION
     Dosage: 0.07 MG, QD, ORAL
     Route: 048
     Dates: end: 20090721
  4. HCT HEXAL             (HYDROCHLOROTHIAZIDE) TABLET [Suspect]
     Indication: HYPERTENSION
     Dosage: 25 MG, QD, ORAL
     Route: 048
     Dates: end: 20090721
  5. AGGRENOX [Concomitant]
  6. FORMOTEROL          (FORMOTEROL) [Concomitant]
  7. INSULIN ACTRAPID HUMAN             (INSULIN HUMAN) [Concomitant]
  8. KEPRA        (LEVETIRACETAM) [Concomitant]
  9. L-THYROXINE (LEVOTHYROXINE) [Concomitant]
  10. PANTOPRAZOLE SODIUM [Concomitant]
  11. RAMIPRIL [Concomitant]
  12. SPIRIVA [Concomitant]

REACTIONS (3)
  - BRADYCARDIA [None]
  - DRUG INTERACTION [None]
  - HYPERCALCAEMIA [None]
